FAERS Safety Report 5066188-7 (Version None)
Quarter: 2006Q3

REPORT INFORMATION
  Report Type: 
  Country: None (occurrence: None)
  Receive Date: 20060703
  Receipt Date: 20051109
  Transmission Date: 20061208
  Serious: Yes (Hospitalization)
  Sender: FDA-Public Use
  Company Number: WAES 0511USA01841

PATIENT
  Sex: Female

DRUGS (1)
  1. HYZAAR [Suspect]
     Indication: BLOOD PRESSURE
     Dosage: 100/25 MG/DAILY/PO
     Route: 048

REACTIONS (1)
  - BLOOD SODIUM DECREASED [None]
